FAERS Safety Report 6084382-3 (Version None)
Quarter: 2009Q1

REPORT INFORMATION
  Report Type: 
  Country: None (occurrence: None)
  Receive Date: 20090219
  Receipt Date: 20090217
  Transmission Date: 20090719
  Serious: Yes (Hospitalization)
  Sender: FDA-Public Use
  Company Number: A0768916A

PATIENT
  Age: 77 Year
  Sex: Female

DRUGS (4)
  1. CARVEDILOL [Suspect]
     Indication: CORONARY ARTERY DISEASE
     Route: 065
  2. LOVAZA [Suspect]
     Route: 065
  3. ASPIRIN [Concomitant]
  4. TRICOR [Concomitant]

REACTIONS (2)
  - HAEMORRHAGIC STROKE [None]
  - SPEECH DISORDER [None]
